FAERS Safety Report 25216056 (Version 1)
Quarter: 2025Q2

REPORT INFORMATION
  Report Type: Spontaneous
  Country: BR (occurrence: BR)
  Receive Date: 20250418
  Receipt Date: 20250418
  Transmission Date: 20250717
  Serious: Yes (Other)
  Sender: ROCHE
  Company Number: BR-002147023-NVSC2025BR061090

PATIENT
  Sex: Female

DRUGS (2)
  1. XOLAIR [Suspect]
     Active Substance: OMALIZUMAB
     Indication: Asthma
     Dosage: 300 MG (EVERY 4 WEEKS)
     Route: 058
     Dates: start: 20250328
  2. Alenia [Concomitant]
     Indication: Asthma
     Dosage: UNK, BID (12/400)
     Route: 065

REACTIONS (2)
  - Dyspnoea [Recovering/Resolving]
  - Body temperature decreased [Unknown]
